FAERS Safety Report 24291302 (Version 1)
Quarter: 2024Q3

REPORT INFORMATION
  Report Type: Spontaneous
  Country: US (occurrence: None)
  Receive Date: 20240906
  Receipt Date: 20240906
  Transmission Date: 20241016
  Serious: No
  Sender: DOMPE FARMACEUTICI
  Company Number: US-FARMAPROD-202308-2448

PATIENT
  Sex: Male

DRUGS (9)
  1. OXERVATE [Suspect]
     Active Substance: CENEGERMIN-BKBJ
     Indication: Neurotrophic keratopathy
     Route: 047
     Dates: start: 20230731
  2. FISH OIL [Concomitant]
     Active Substance: FISH OIL
     Dosage: 100-160 MG
  3. FLUOROMETHOLONE [Concomitant]
     Active Substance: FLUOROMETHOLONE
  4. TESTOSTERONE [Concomitant]
     Active Substance: TESTOSTERONE
     Dosage: 1%
  5. TAMSULOSIN HYDROCHLORIDE [Concomitant]
     Active Substance: TAMSULOSIN HYDROCHLORIDE
  6. FINASTERIDE [Concomitant]
     Active Substance: FINASTERIDE
  7. ALPRAZOLAM [Concomitant]
     Active Substance: ALPRAZOLAM
  8. VITAMINS [Concomitant]
     Active Substance: VITAMINS
  9. OPTASE [Concomitant]

REACTIONS (6)
  - Eye pain [Unknown]
  - Eyelid pain [Unknown]
  - Ocular hyperaemia [Unknown]
  - Lacrimation increased [Unknown]
  - Vision blurred [Unknown]
  - Dry eye [Unknown]
